FAERS Safety Report 24235681 (Version 2)
Quarter: 2024Q3

REPORT INFORMATION
  Report Type: Spontaneous
  Country: US (occurrence: US)
  Receive Date: 20240822
  Receipt Date: 20240917
  Transmission Date: 20241017
  Serious: No
  Sender: ROCHE
  Company Number: US-ROCHE-10000058224

PATIENT
  Age: 49 Year
  Sex: Female
  Weight: 49.9 kg

DRUGS (4)
  1. ACTEMRA [Suspect]
     Active Substance: TOCILIZUMAB
     Indication: Sarcoidosis
     Route: 058
     Dates: start: 2017
  2. ACTEMRA [Suspect]
     Active Substance: TOCILIZUMAB
     Indication: Rheumatoid arthritis
     Route: 058
     Dates: end: 2022
  3. PROGESTERONE [Concomitant]
     Active Substance: PROGESTERONE
     Dosage: CAPSULE
     Route: 048
     Dates: start: 202402
  4. ESTRADIOL [Concomitant]
     Active Substance: ESTRADIOL
     Route: 062
     Dates: start: 202402

REACTIONS (8)
  - Device defective [Unknown]
  - Product quality issue [Unknown]
  - Needle issue [Unknown]
  - Device issue [Unknown]
  - Product dose omission issue [Unknown]
  - Menopause [Not Recovered/Not Resolved]
  - Off label use [Unknown]
  - Product knowledge deficit [Unknown]

NARRATIVE: CASE EVENT DATE: 20200101
